FAERS Safety Report 5264255-6 (Version None)
Quarter: 2007Q1

REPORT INFORMATION
  Report Type: 
  Country: None (occurrence: None)
  Receive Date: 20070313
  Receipt Date: 20070305
  Transmission Date: 20070707
  Serious: Yes (Hospitalization)
  Sender: FDA-Public Use
  Company Number: US-ABBOTT-07P-163-0361106-00

PATIENT
  Sex: Male
  Weight: 79.45 kg

DRUGS (3)
  1. OMNICEF [Suspect]
     Indication: PNEUMONIA
     Route: 048
     Dates: start: 20070223, end: 20070226
  2. LEVOFLOXACIN [Concomitant]
     Indication: PNEUMONIA
     Route: 048
     Dates: start: 20070228
  3. MUCINEX DM [Concomitant]
     Indication: PNEUMONIA
     Route: 048
     Dates: start: 20070223

REACTIONS (2)
  - DRUG INEFFECTIVE [None]
  - PNEUMONIA [None]
